FAERS Safety Report 16277580 (Version 4)
Quarter: 2021Q2

REPORT INFORMATION
  Report Type: Report from Study
  Country: US (occurrence: US)
  Receive Date: 20190506
  Receipt Date: 20210428
  Transmission Date: 20210716
  Serious: Yes (Life-Threatening, Hospitalization, Other)
  Sender: FDA-Public Use
  Company Number: US-PFIZER INC-2019189214

PATIENT
  Age: 17 Year
  Sex: Male

DRUGS (5)
  1. IMATINIB. [Interacting]
     Active Substance: IMATINIB MESYLATE
     Dosage: 340 MG/M2, 1X/DAY
  2. IMATINIB. [Interacting]
     Active Substance: IMATINIB MESYLATE
     Indication: ACUTE LYMPHOCYTIC LEUKAEMIA
     Dosage: UNK, CYCLIC
  3. METHOTREXATE SODIUM. [Interacting]
     Active Substance: METHOTREXATE SODIUM
     Indication: ACUTE LYMPHOCYTIC LEUKAEMIA
     Dosage: 20 MG/M2, WEEKLY, (DURING MAINTENANCE THERAPY)
     Route: 048
  4. METHOTREXATE SODIUM. [Interacting]
     Active Substance: METHOTREXATE SODIUM
     Dosage: 5000 MG/M2, CYCLIC (INFUSED OVER 24 HOURS, 7 TOTAL DOSES, HD?MTX)
  5. METHOTREXATE SODIUM. [Suspect]
     Active Substance: METHOTREXATE SODIUM
     Indication: ACUTE LYMPHOCYTIC LEUKAEMIA
     Dosage: UNK, CYCLIC (1ST CYCLE,HIGH?DOSE MTX)HD?MTX INFUSION

REACTIONS (8)
  - Thrombocytopenia [Unknown]
  - Mucosal inflammation [Unknown]
  - Drug interaction [Recovering/Resolving]
  - Neurotoxicity [Unknown]
  - Oedema peripheral [Unknown]
  - Drug clearance decreased [Unknown]
  - Acute kidney injury [Recovering/Resolving]
  - Neutropenia [Unknown]
